FAERS Safety Report 22873163 (Version 2)
Quarter: 2025Q2

REPORT INFORMATION
  Report Type: Spontaneous
  Country: US (occurrence: None)
  Receive Date: 20230828
  Receipt Date: 20250512
  Transmission Date: 20250717
  Serious: No
  Sender: INCYTE
  Company Number: US-INCYTE CORPORATION-2023IN008771

PATIENT
  Age: 71 Year

DRUGS (2)
  1. JAKAFI [Suspect]
     Active Substance: RUXOLITINIB
     Indication: Myeloproliferative neoplasm
     Dosage: 10 MILLIGRAM, BID
  2. JAKAFI [Suspect]
     Active Substance: RUXOLITINIB
     Indication: Essential thrombocythaemia
     Dosage: 15 MILLIGRAM, BID

REACTIONS (4)
  - Fatigue [Recovering/Resolving]
  - Asthenia [Unknown]
  - Decreased activity [Unknown]
  - Off label use [Unknown]
